FAERS Safety Report 6620778-6 (Version None)
Quarter: 2010Q1

REPORT INFORMATION
  Report Type: 
  Country: None (occurrence: None)
  Receive Date: 20100309
  Receipt Date: 20100225
  Transmission Date: 20100710
  Serious: Yes (Hospitalization)
  Sender: FDA-Public Use
  Company Number: NL-WATSON-2010-02535

PATIENT
  Age: 65 Year
  Sex: Female

DRUGS (2)
  1. ALENDRONATE SODIUM [Suspect]
     Indication: DRUG USE FOR UNKNOWN INDICATION
     Dosage: 70 MG, 1/WEEK
  2. PREDNISONE TAB [Suspect]
     Indication: ANTIINFLAMMATORY THERAPY
     Dosage: 10 MG, DAILY

REACTIONS (2)
  - FEMUR FRACTURE [None]
  - STRESS FRACTURE [None]
